FAERS Safety Report 13817840 (Version 1)
Quarter: 2017Q3

REPORT INFORMATION
  Report Type: Spontaneous
  Country: US (occurrence: US)
  Receive Date: 20170731
  Receipt Date: 20170731
  Transmission Date: 20171127
  Serious: No
  Sender: FDA-Public Use
  Company Number: US-ROCHE-674779

PATIENT
  Age: 30 Year
  Sex: Male
  Weight: 49.4 kg

DRUGS (1)
  1. BONIVA [Suspect]
     Active Substance: IBANDRONATE SODIUM
     Indication: OSTEOPOROSIS
     Dosage: PATIENT RECEIVED TWO INJECTIONS, FREQUENCY: QUARTERLY
     Route: 042

REACTIONS (4)
  - Injection site reaction [Not Recovered/Not Resolved]
  - Injection site thrombosis [Unknown]
  - Injection site bruising [Unknown]
  - Injection site extravasation [Recovered/Resolved]

NARRATIVE: CASE EVENT DATE: 20091211
